FAERS Safety Report 10261862 (Version 1)
Quarter: 2014Q2

REPORT INFORMATION
  Report Type: Spontaneous
  Country: PL (occurrence: PL)
  Receive Date: 20140626
  Receipt Date: 20140626
  Transmission Date: 20141212
  Serious: Yes (Death)
  Sender: FDA-Public Use
  Company Number: PHHY2014PL077886

PATIENT
  Age: 75 Year
  Sex: Male

DRUGS (4)
  1. DOCETAXEL [Suspect]
     Indication: CHEMOTHERAPY
  2. CISPLATIN [Suspect]
     Indication: CHEMOTHERAPY
  3. 5-FLUOROURACIL [Suspect]
     Indication: CHEMOTHERAPY
  4. ONDANSETRON [Suspect]
     Indication: ANTIEMETIC SUPPORTIVE CARE

REACTIONS (3)
  - Death [Fatal]
  - Intestinal obstruction [Unknown]
  - Constipation [Recovering/Resolving]
